FAERS Safety Report 7934097-9 (Version None)
Quarter: 2011Q4

REPORT INFORMATION
  Report Type: 
  Country: None (occurrence: None)
  Receive Date: 20111122
  Receipt Date: 20110802
  Transmission Date: 20120403
  Serious: No
  Sender: FDA-Public Use
  Company Number: US-BAYER-2011-068643

PATIENT
  Age: 71 Year
  Sex: Male

DRUGS (7)
  1. LEVITRA [Suspect]
     Indication: ERECTILE DYSFUNCTION
     Dosage: 20 MG, UNK
     Route: 048
     Dates: start: 20060101, end: 20110731
  2. LISINOPRIL [Concomitant]
  3. LUMIGAN [Concomitant]
  4. LOVASTATIN [Concomitant]
  5. STANOZOLOL [Concomitant]
  6. LEVOTHYROXINE SODIUM [Concomitant]
  7. OMEPRAZOLE [Concomitant]

REACTIONS (3)
  - FEELING HOT [None]
  - DRUG INEFFECTIVE [None]
  - UNEVALUABLE EVENT [None]
